FAERS Safety Report 4344503-7 (Version None)
Quarter: 2004Q1

REPORT INFORMATION
  Report Type: 
  Country: None (occurrence: None)
  Receive Date: 20040319
  Receipt Date: 20040121
  Transmission Date: 20041129
  Serious: No
  Sender: FDA-Public Use
  Company Number: US-JNJFOC-20031003272

PATIENT
  Age: 26 Year
  Sex: Female
  Weight: 68.4932 kg

DRUGS (4)
  1. ORTHO EVRA [Suspect]
     Indication: CONTRACEPTION
     Dosage: 1 DOSE(S), 3 IN 4 WEEK, TRANSDERMAL
     Route: 062
     Dates: start: 20020901, end: 20030401
  2. B12 (CYANOCOBALAMIN) [Concomitant]
  3. IRON (IRON) [Concomitant]
  4. PRENATAL VITAMIN (PRENATAL VITAMINS) [Concomitant]

REACTIONS (3)
  - DRUG EXPOSURE DURING PREGNANCY [None]
  - PREMATURE LABOUR [None]
  - UNINTENDED PREGNANCY [None]
